FAERS Safety Report 16169508 (Version 1)
Quarter: 2019Q2

REPORT INFORMATION
  Report Type: Spontaneous
  Country: US (occurrence: US)
  Receive Date: 20190406
  Receipt Date: 20190406
  Transmission Date: 20190711
  Serious: No
  Sender: FDA-Public Use
  Company Number: None

PATIENT
  Age: 72 Year
  Sex: Male

DRUGS (4)
  1. PROPAFENONE 300MG   TAB [Concomitant]
     Dates: start: 20181023
  2. XARELTO [Concomitant]
     Active Substance: RIVAROXABAN
     Dates: start: 20181023
  3. ATORVASTATIN 10MG   TAB [Concomitant]
     Dates: start: 20181030
  4. METOPROLOL ER 100MG TAB [Suspect]
     Active Substance: METOPROLOL
     Route: 048

REACTIONS (3)
  - Withdrawal hypertension [None]
  - Product substitution issue [None]
  - Drug ineffective [None]

NARRATIVE: CASE EVENT DATE: 20190406
